FAERS Safety Report 6243483-7 (Version None)
Quarter: 2009Q2

REPORT INFORMATION
  Report Type: 
  Country: None (occurrence: None)
  Receive Date: 20090622
  Receipt Date: 20090611
  Transmission Date: 20091009
  Serious: Yes (Death, Hospitalization, Other)
  Sender: FDA-Public Use
  Company Number: 82404

PATIENT
  Age: 67 Year
  Sex: Female

DRUGS (1)
  1. ADRIAMYCIN PFS [Suspect]
     Indication: LYMPHOMA

REACTIONS (20)
  - ANAEMIA [None]
  - ARTERIAL THROMBOSIS LIMB [None]
  - BLISTER [None]
  - BLOOD IRON DECREASED [None]
  - CLOSTRIDIAL INFECTION [None]
  - COMPARTMENT SYNDROME [None]
  - CYANOSIS [None]
  - ERYTHEMA [None]
  - GAS GANGRENE [None]
  - HYPERSENSITIVITY [None]
  - JOINT SWELLING [None]
  - LEG AMPUTATION [None]
  - LEUKOPENIA [None]
  - MUSCLE NECROSIS [None]
  - PAIN IN EXTREMITY [None]
  - PERIPHERAL ISCHAEMIA [None]
  - PERONEAL NERVE PALSY [None]
  - PSEUDOMEMBRANOUS COLITIS [None]
  - PULSE ABSENT [None]
  - SEPTIC SHOCK [None]
